FAERS Safety Report 4298843-0 (Version None)
Quarter: 2004Q1

REPORT INFORMATION
  Report Type: 
  Country: None (occurrence: None)
  Receive Date: 20040126
  Receipt Date: 20031030
  Transmission Date: 20041129
  Serious: No
  Sender: FDA-Public Use
  Company Number: USA031051283

PATIENT
  Age: 12 Year

DRUGS (2)
  1. STRATTERA [Suspect]
     Dosage: 100 MG/DAY
  2. CONCERTA [Concomitant]

REACTIONS (2)
  - EAR PAIN [None]
  - PAIN IN JAW [None]
